FAERS Safety Report 9163654 (Version 4)
Quarter: 2013Q4

REPORT INFORMATION
  Report Type: Spontaneous
  Country: JP (occurrence: JP)
  Receive Date: 20130314
  Receipt Date: 20131223
  Transmission Date: 20140711
  Serious: Yes (Other)
  Sender: FDA-Public Use
  Company Number: JP-VERTEX PHARMACEUTICALS INC.-2013-003517

PATIENT
  Age: 69 Year
  Sex: Female

DRUGS (12)
  1. TELAVIC [Suspect]
     Indication: CHRONIC HEPATITIS C
     Dosage: 1500 MG, QD
     Route: 048
     Dates: start: 20121001, end: 20121023
  2. TELAVIC [Suspect]
     Dosage: 750 MG, QD
     Route: 048
     Dates: start: 20121024, end: 20121112
  3. TELAVIC [Suspect]
     Dosage: 2250 MG, QD
     Route: 048
     Dates: start: 20121113, end: 20121219
  4. TELAVIC [Suspect]
     Dosage: 750 MG, QD
     Route: 048
     Dates: start: 20121226, end: 20130219
  5. PEGINTRON [Suspect]
     Indication: CHRONIC HEPATITIS C
     Dosage: 1.5 ?G/KG, QW
     Route: 058
     Dates: start: 20121001, end: 20121023
  6. PEGINTRON [Suspect]
     Dosage: 1.0 ?G/KG, QW
     Route: 058
     Dates: start: 20121024, end: 20121211
  7. PEGINTRON [Suspect]
     Dosage: 0.75 ?G/KG, QW
     Route: 058
     Dates: start: 20121212, end: 20130122
  8. PEGINTRON [Suspect]
     Dosage: 0.5 ?G/KG, QW
     Route: 058
     Dates: start: 20130123, end: 20130306
  9. REBETOL [Suspect]
     Indication: CHRONIC HEPATITIS C
     Dosage: 400 MG, QD
     Route: 048
     Dates: start: 20121001, end: 20121023
  10. REBETOL [Suspect]
     Dosage: 200 MG, QD
     Route: 048
     Dates: start: 20121024, end: 20130306
  11. PARIET [Concomitant]
     Dosage: 1 DF, QD
     Route: 048
     Dates: start: 20121010, end: 20130308
  12. APLACE [Concomitant]
     Dosage: 3 DF, QD
     Route: 048
     Dates: start: 20121010, end: 20130308

REACTIONS (4)
  - Aspartate aminotransferase increased [Recovered/Resolved]
  - Jaundice [Recovered/Resolved]
  - Pruritus [Recovered/Resolved]
  - Urticaria [Recovered/Resolved]
